FAERS Safety Report 23070328 (Version 1)
Quarter: 2023Q4

REPORT INFORMATION
  Report Type: Spontaneous
  Country: US (occurrence: None)
  Receive Date: 20231016
  Receipt Date: 20231016
  Transmission Date: 20240109
  Serious: Yes (Disabling)
  Sender: FDA-Public Use
  Company Number: None

PATIENT
  Age: 64 Year
  Sex: Female
  Weight: 53.1 kg

DRUGS (1)
  1. RECLAST [Suspect]
     Active Substance: ZOLEDRONIC ACID
     Indication: Osteoporosis

REACTIONS (5)
  - Oral discomfort [None]
  - Tongue disorder [None]
  - Pain in jaw [None]
  - Heart rate irregular [None]
  - Infusion related reaction [None]

NARRATIVE: CASE EVENT DATE: 20210308
